FAERS Safety Report 5891554-7 (Version None)
Quarter: 2008Q3

REPORT INFORMATION
  Report Type: 
  Country: None (occurrence: None)
  Receive Date: 20080922
  Receipt Date: 20080910
  Transmission Date: 20090109
  Serious: Yes (Other)
  Sender: FDA-Public Use
  Company Number: US-WYE-H05923608

PATIENT
  Sex: Female

DRUGS (15)
  1. PRISTIQ [Suspect]
     Dates: start: 20080717, end: 20080806
  2. PRISTIQ [Suspect]
     Dates: start: 20080807, end: 20080821
  3. PRISTIQ [Suspect]
     Dates: start: 20080822
  4. CLONAZEPAM [Concomitant]
     Indication: ANXIETY
     Dosage: 0.5 MG 3 TIMES DAILY AS NEEDED
  5. VIVELLE [Concomitant]
     Indication: HORMONE REPLACEMENT THERAPY
  6. ASCORBIC ACID [Concomitant]
  7. NORTRIPTYLINE HCL [Concomitant]
     Indication: DEPRESSION
  8. NORTRIPTYLINE HCL [Concomitant]
     Indication: ANXIETY
  9. CHONDROITIN A [Concomitant]
     Dosage: 2 TBSP EVERY 1 DAY
  10. VITAMIN D [Concomitant]
     Indication: VITAMIN D DEFICIENCY
  11. FLAXSEED [Concomitant]
     Indication: IRRITABLE BOWEL SYNDROME
  12. FISH OIL, HYDROGENATED [Concomitant]
     Route: 048
  13. SEROQUEL [Concomitant]
     Indication: ANXIETY
     Dosage: 25 MG PRN
     Route: 048
  14. SEROQUEL [Concomitant]
     Indication: DEPRESSION
  15. GLUCOSAMINE [Concomitant]
     Dosage: 2 TBSP EVERY 1 DAY

REACTIONS (19)
  - ANXIETY [None]
  - APATHY [None]
  - CRYING [None]
  - DEPRESSED MOOD [None]
  - DEPRESSION [None]
  - DIARRHOEA [None]
  - DRUG WITHDRAWAL SYNDROME [None]
  - EMOTIONAL DISORDER [None]
  - FATIGUE [None]
  - FEAR [None]
  - FEELING ABNORMAL [None]
  - FLATULENCE [None]
  - HAEMORRHOIDS [None]
  - MALAISE [None]
  - MOOD ALTERED [None]
  - NAUSEA [None]
  - NEGATIVE THOUGHTS [None]
  - SUICIDAL IDEATION [None]
  - UNEVALUABLE EVENT [None]
